FAERS Safety Report 5210091-6 (Version None)
Quarter: 2006Q4

REPORT INFORMATION
  Report Type: 
  Country: None (occurrence: None)
  Receive Date: 20061103
  Receipt Date: 20060209
  Transmission Date: 20070319
  Serious: Yes (Other)
  Sender: FDA-Public Use
  Company Number: K200600191

PATIENT
  Age: 49 Year
  Sex: Female
  Weight: 57 kg

DRUGS (1)
  1. SYNERCID [Suspect]
     Indication: ENTEROCOCCAL INFECTION
     Dosage: 430 MG, QH8; INTRAVENOUS
     Route: 042
     Dates: start: 20060201

REACTIONS (5)
  - ALANINE AMINOTRANSFERASE INCREASED [None]
  - ASPARTATE AMINOTRANSFERASE INCREASED [None]
  - BLOOD ALKALINE PHOSPHATASE INCREASED [None]
  - BLOOD BILIRUBIN INCREASED [None]
  - GAMMA-GLUTAMYLTRANSFERASE INCREASED [None]
